FAERS Safety Report 11545981 (Version 1)
Quarter: 2015Q3

REPORT INFORMATION
  Report Type: Spontaneous
  Country: US (occurrence: US)
  Receive Date: 20150903
  Receipt Date: 20150903
  Transmission Date: 20151125
  Serious: Yes (Hospitalization)
  Sender: FDA-Public Use
  Company Number: US-ELI_LILLY_AND_COMPANY-US201207000760

PATIENT
  Age: 57 Year
  Sex: Male

DRUGS (2)
  1. HUMALOG [Suspect]
     Active Substance: INSULIN LISPRO
     Indication: TYPE 2 DIABETES MELLITUS
     Dosage: 46 U, PRN
  2. LANTUS [Concomitant]
     Active Substance: INSULIN GLARGINE
     Dosage: 42 U, PRN

REACTIONS (1)
  - Hypoglycaemia [Recovered/Resolved]
